FAERS Safety Report 18281669 (Version 1)
Quarter: 2020Q3

REPORT INFORMATION
  Report Type: Spontaneous
  Country: DE (occurrence: DE)
  Receive Date: 20200918
  Receipt Date: 20200918
  Transmission Date: 20201103
  Serious: Yes (Hospitalization)
  Sender: FDA-Public Use
  Company Number: DE-B.I. PHARMACEUTICALS,INC./RIDGEFIELD-2020-BI-047436

PATIENT
  Age: 91 Year
  Sex: Male

DRUGS (10)
  1. ACETYLSALICYLSYRE [Concomitant]
     Active Substance: ASPIRIN
     Indication: PRODUCT USED FOR UNKNOWN INDICATION
     Dosage: 100 MG, 1?0?0?0
  2. VITAMIN B12 [Concomitant]
     Active Substance: CYANOCOBALAMIN
     Indication: PRODUCT USED FOR UNKNOWN INDICATION
     Dosage: NK MG / WOCHE, 1X
  3. ATORVASTATIN [Concomitant]
     Active Substance: ATORVASTATIN
     Indication: PRODUCT USED FOR UNKNOWN INDICATION
     Dosage: 40 MG, 0?0?1?0
  4. CALCIFEROL VIT D [Concomitant]
     Indication: PRODUCT USED FOR UNKNOWN INDICATION
     Dosage: NK IE / WOCHE, 1X
  5. AMLODIPIN [AMLODIPINE BESILATE] [Concomitant]
     Active Substance: AMLODIPINE BESYLATE
     Indication: PRODUCT USED FOR UNKNOWN INDICATION
     Dosage: 5 MG, 0?0?1?0
  6. PANTOPRAZOL [PANTOPRAZOLE] [Concomitant]
     Active Substance: PANTOPRAZOLE
     Indication: PRODUCT USED FOR UNKNOWN INDICATION
     Dosage: 40 MG, 1?0?0?0
  7. TROSPIUM [Concomitant]
     Active Substance: TROSPIUM
     Indication: PRODUCT USED FOR UNKNOWN INDICATION
     Dosage: 15 MG, 0.5?0?0.5?0
  8. BISOPROLOL [Concomitant]
     Active Substance: BISOPROLOL
     Indication: PRODUCT USED FOR UNKNOWN INDICATION
     Dosage: 2.5 MG, 1?0?1?0
  9. JARDIANCE [Suspect]
     Active Substance: EMPAGLIFLOZIN
     Indication: PRODUCT USED FOR UNKNOWN INDICATION
     Dosage: 25 MG, 1?0?0?0
  10. EZETIMIBE. [Concomitant]
     Active Substance: EZETIMIBE
     Indication: PRODUCT USED FOR UNKNOWN INDICATION
     Dosage: 10 MG, 0?0?1?0
     Route: 065

REACTIONS (3)
  - Personality change [Unknown]
  - General physical health deterioration [Unknown]
  - Pyrexia [Unknown]
